FAERS Safety Report 13496897 (Version 4)
Quarter: 2017Q3

REPORT INFORMATION
  Report Type: Report from Study
  Country: CO (occurrence: CO)
  Receive Date: 20170428
  Receipt Date: 20170809
  Transmission Date: 20171127
  Serious: Yes (Death, Hospitalization, Other)
  Sender: FDA-Public Use
  Company Number: CO-JNJFOC-20170401329

PATIENT
  Age: 64 Year
  Sex: Female
  Weight: 54 kg

DRUGS (3)
  1. IMBRUVICA [Suspect]
     Active Substance: IBRUTINIB
     Indication: CHRONIC LYMPHOCYTIC LEUKAEMIA
     Route: 048
     Dates: start: 20161201, end: 20170111
  2. IMBRUVICA [Suspect]
     Active Substance: IBRUTINIB
     Indication: CHRONIC LYMPHOCYTIC LEUKAEMIA
     Route: 048
     Dates: start: 20170112
  3. IMBRUVICA [Suspect]
     Active Substance: IBRUTINIB
     Indication: CHRONIC LYMPHOCYTIC LEUKAEMIA
     Route: 048
     Dates: start: 20170112

REACTIONS (9)
  - Restlessness [Not Recovered/Not Resolved]
  - Incorrect dose administered [Unknown]
  - Dizziness [Unknown]
  - Off label use [Unknown]
  - Pain in extremity [Not Recovered/Not Resolved]
  - Blood glucose increased [Recovered/Resolved]
  - Death [Fatal]
  - Cerebral ischaemia [Unknown]
  - Haematoma [Recovering/Resolving]

NARRATIVE: CASE EVENT DATE: 20170112
